FAERS Safety Report 6891699-9 (Version None)
Quarter: 2010Q3

REPORT INFORMATION
  Report Type: 
  Country: None (occurrence: None)
  Receive Date: 20100731
  Receipt Date: 20070927
  Transmission Date: 20110219
  Serious: No
  Sender: FDA-Public Use
  Company Number: US-PFIZER INC-2007070715

PATIENT
  Sex: Male
  Weight: 86.363 kg

DRUGS (2)
  1. GABAPENTIN [Suspect]
     Indication: POST HERPETIC NEURALGIA
     Route: 048
     Dates: start: 20070601
  2. ALEVE (CAPLET) [Concomitant]

REACTIONS (1)
  - DRUG INEFFECTIVE [None]
